FAERS Safety Report 15023339 (Version 2)
Quarter: 2018Q3

REPORT INFORMATION
  Report Type: Spontaneous
  Country: FR (occurrence: FR)
  Receive Date: 20180618
  Receipt Date: 20180711
  Transmission Date: 20181010
  Serious: Yes (Life-Threatening, Hospitalization, Other)
  Sender: FDA-Public Use
  Company Number: FR-MYLANLABS-2018M1039580

PATIENT
  Age: 57 Year
  Sex: Female

DRUGS (6)
  1. TEMOZOLOMIDE. [Concomitant]
     Active Substance: TEMOZOLOMIDE
     Dosage: 125 MG/M2, ADMINISTERED PER OS DAILY
     Route: 048
  2. IRINOTECAN [Suspect]
     Active Substance: IRINOTECAN
     Indication: ALVEOLAR RHABDOMYOSARCOMA
     Dosage: 50 MG/M2, 1X/DAY:QD
     Route: 042
  3. ACTINOMYCIN D [Concomitant]
     Active Substance: DACTINOMYCIN
     Indication: ALVEOLAR RHABDOMYOSARCOMA
     Dosage: UNK
  4. TEMOZOLOMIDE. [Concomitant]
     Active Substance: TEMOZOLOMIDE
     Indication: ALVEOLAR RHABDOMYOSARCOMA
     Dosage: 125 MG/M2, 1X/DAY:QD
     Route: 042
  5. VINCRISTINE [Concomitant]
     Active Substance: VINCRISTINE
     Indication: ALVEOLAR RHABDOMYOSARCOMA
     Dosage: UNK
  6. IFOSFAMIDE. [Concomitant]
     Active Substance: IFOSFAMIDE
     Indication: ALVEOLAR RHABDOMYOSARCOMA
     Dosage: UNK

REACTIONS (13)
  - Anaemia [Unknown]
  - Dehydration [Unknown]
  - Enteritis [Unknown]
  - Neutropenia [Recovered/Resolved]
  - Stomatitis [Unknown]
  - Acute kidney injury [Unknown]
  - Diarrhoea [Recovered/Resolved]
  - Toxicity to various agents [Unknown]
  - Diverticulitis [Unknown]
  - Septic shock [Unknown]
  - Hepatocellular injury [Unknown]
  - Vomiting [Unknown]
  - Thrombocytopenia [Unknown]
